FAERS Safety Report 11472185 (Version 1)
Quarter: 2015Q3

REPORT INFORMATION
  Report Type: Spontaneous
  Country: US (occurrence: US)
  Receive Date: 20150908
  Receipt Date: 20150908
  Transmission Date: 20151125
  Serious: No
  Sender: FDA-Public Use
  Company Number: US-SA-2015SA064309

PATIENT
  Age: 72 Year
  Sex: Female

DRUGS (3)
  1. SOLOSTAR [Concomitant]
     Active Substance: DEVICE
     Dates: start: 20150507
  2. TOUJEO [Suspect]
     Active Substance: INSULIN GLARGINE
     Indication: TYPE 2 DIABETES MELLITUS
     Dosage: DOSE:46 UNIT(S)
     Route: 065
     Dates: start: 20150507
  3. LANTUS [Concomitant]
     Active Substance: INSULIN GLARGINE
     Indication: TYPE 2 DIABETES MELLITUS
     Dosage: DOSE:46 UNIT(S)
     Dates: end: 2015

REACTIONS (2)
  - Blood glucose increased [Not Recovered/Not Resolved]
  - Diarrhoea [Not Recovered/Not Resolved]

NARRATIVE: CASE EVENT DATE: 20150508
